FAERS Safety Report 9394159 (Version 2)
Quarter: 2013Q3

REPORT INFORMATION
  Report Type: Report from Study
  Country: US (occurrence: US)
  Receive Date: 20130710
  Receipt Date: 20130815
  Transmission Date: 20140515
  Serious: Yes (Death)
  Sender: FDA-Public Use
  Company Number: US-ROCHE-1247437

PATIENT
  Age: 52 Year
  Sex: Male
  Weight: 86.26 kg

DRUGS (15)
  1. XELODA [Suspect]
     Indication: COLON CANCER
     Dosage: ON DAY 1-7Q.14DAYS
     Route: 065
  2. FLUOROURACIL [Concomitant]
  3. OXYCODON [Concomitant]
     Dosage: 1PO, Q3-4H, PRN
     Route: 048
  4. AVASTIN [Concomitant]
     Route: 065
     Dates: start: 20130521
  5. AVASTIN [Concomitant]
     Dosage: DAY1, Q, 14 DAYS
     Route: 065
  6. OXALIPLATIN [Concomitant]
  7. FOLINIC ACID [Concomitant]
  8. CAMPTOSAR [Concomitant]
     Dosage: DAY1, Q, 14 DAYS
     Route: 065
     Dates: start: 20130521
  9. LASIX [Concomitant]
     Route: 065
  10. POTASSIUM CHLORIDE [Concomitant]
     Route: 065
  11. ATARAX (UNITED STATES) [Concomitant]
     Dosage: 1PO Q4-GH, PRN
     Route: 048
  12. CELEXA (UNITED STATES) [Concomitant]
     Dosage: OUTDIDE RX
     Route: 065
  13. CIPROFLOXACIN [Concomitant]
     Route: 048
  14. SPIRONOLACTONE [Concomitant]
  15. PROCHLORPERAZINE MALEATE [Concomitant]
     Indication: NAUSEA
     Dosage: Q4-6H, PRN
     Route: 048

REACTIONS (1)
  - Death [Fatal]
